FAERS Safety Report 8536332-5 (Version None)
Quarter: 2012Q3

REPORT INFORMATION
  Report Type: 
  Country: None (occurrence: None)
  Receive Date: 20120725
  Receipt Date: 20120723
  Transmission Date: 20120928
  Serious: No
  Sender: FDA-Public Use
  Company Number: US-BAYER-2012-074247

PATIENT
  Sex: Male

DRUGS (3)
  1. LIPITOR [Concomitant]
  2. ALEVE (CAPLET) [Suspect]
     Indication: ARTHRITIS
     Dosage: 2 DF, BID
     Route: 048
  3. LOTREL [Concomitant]

REACTIONS (1)
  - NO ADVERSE EVENT [None]
